FAERS Safety Report 24399945 (Version 1)
Quarter: 2024Q4

REPORT INFORMATION
  Report Type: Spontaneous
  Country: PL (occurrence: PL)
  Receive Date: 20241005
  Receipt Date: 20241005
  Transmission Date: 20250115
  Serious: Yes (Life-Threatening, Other)
  Sender: AUROBINDO
  Company Number: PL-URPL-1-2753-2020

PATIENT
  Age: 68 Year
  Sex: Male
  Weight: 120 kg

DRUGS (3)
  1. ACETAMINOPHEN [Suspect]
     Active Substance: ACETAMINOPHEN
     Indication: Product used for unknown indication
     Dosage: UNK, LACK OF PRECISE DOSAGE DATA
     Route: 065
     Dates: end: 20200309
  2. TRAMADOL [Suspect]
     Active Substance: TRAMADOL
     Indication: Product used for unknown indication
     Dosage: UNK, LACK OF PRECISE DOSAGE DATA
     Route: 065
     Dates: end: 20200309
  3. TRAZODONE HYDROCHLORIDE [Suspect]
     Active Substance: TRAZODONE HYDROCHLORIDE
     Indication: Product used for unknown indication
     Dosage: UNK, LACK OF PRECISE DOSAGE DATA
     Route: 065
     Dates: end: 20200309

REACTIONS (2)
  - Alcohol abuse [Recovering/Resolving]
  - Suicide attempt [Recovering/Resolving]
